FAERS Safety Report 15934538 (Version 1)
Quarter: 2019Q1

REPORT INFORMATION
  Report Type: Spontaneous
  Country: PL (occurrence: PL)
  Receive Date: 20190207
  Receipt Date: 20190207
  Transmission Date: 20190417
  Serious: Yes (Other)
  Sender: FDA-Public Use
  Company Number: PL-MYLANLABS-2019M1011848

PATIENT
  Sex: Female

DRUGS (4)
  1. KLACID 500 [Suspect]
     Active Substance: CLARITHROMYCIN
     Indication: PRODUCT USED FOR UNKNOWN INDICATION
     Dosage: 500 MILLIGRAM, UNK
     Route: 048
     Dates: start: 20190130
  2. LETROX [Concomitant]
     Active Substance: LEVOTHYROXINE SODIUM
     Indication: CHRONIC DISEASE
     Dosage: UNK
  3. GLUCOPHAGE [Concomitant]
     Active Substance: METFORMIN HYDROCHLORIDE
     Indication: CHRONIC DISEASE
     Dosage: UNK
  4. MESOPRAL [Concomitant]
     Indication: CHRONIC DISEASE
     Dosage: UNK

REACTIONS (6)
  - Feeling hot [Recovering/Resolving]
  - Eructation [Recovering/Resolving]
  - Haematochezia [Recovering/Resolving]
  - Dysgeusia [Recovering/Resolving]
  - Vertigo [Recovering/Resolving]
  - Rhinitis [Recovering/Resolving]

NARRATIVE: CASE EVENT DATE: 20190130
